FAERS Safety Report 13287696 (Version 1)
Quarter: 2017Q1

REPORT INFORMATION
  Report Type: Report from Study
  Country: BR (occurrence: BR)
  Receive Date: 20170302
  Receipt Date: 20170302
  Transmission Date: 20170428
  Serious: Yes (Death)
  Sender: FDA-Public Use
  Company Number: PHHY2017BR032363

PATIENT
  Age: 91 Year
  Sex: Female
  Weight: 75 kg

DRUGS (2)
  1. EXELON PATCH [Suspect]
     Active Substance: RIVASTIGMINE
     Indication: SENILE DEMENTIA
     Dosage: 1 DF, QD (AT NIGHT)
     Route: 062
     Dates: start: 201401, end: 201609
  2. EXELON PATCH [Suspect]
     Active Substance: RIVASTIGMINE
     Indication: MEMORY IMPAIRMENT

REACTIONS (2)
  - Pneumonia [Fatal]
  - Product use issue [Unknown]

NARRATIVE: CASE EVENT DATE: 20160904
